FAERS Safety Report 4502784-0 (Version None)
Quarter: 2004Q4

REPORT INFORMATION
  Report Type: 
  Country: None (occurrence: None)
  Receive Date: 20041116
  Receipt Date: 20041116
  Transmission Date: 20050328
  Serious: Yes (Life-Threatening, Hospitalization)
  Sender: FDA-Public Use
  Company Number: None

PATIENT
  Sex: Female
  Weight: 74.8435 kg

DRUGS (1)
  1. BACTRIM [Suspect]
     Indication: SINUSITIS
     Dosage: ORAL
     Route: 048
     Dates: start: 20031219, end: 20040101

REACTIONS (9)
  - BURNS FIRST DEGREE [None]
  - BURNS SECOND DEGREE [None]
  - CORNEAL DISORDER [None]
  - PNEUMONIA [None]
  - SCAR [None]
  - STAPHYLOCOCCAL INFECTION [None]
  - THROAT TIGHTNESS [None]
  - THROMBOSIS [None]
  - TOXIC EPIDERMAL NECROLYSIS [None]
